FAERS Safety Report 13149931 (Version 4)
Quarter: 2017Q1

REPORT INFORMATION
  Report Type: Spontaneous
  Country: JP (occurrence: JP)
  Receive Date: 20170125
  Receipt Date: 20170317
  Transmission Date: 20170428
  Serious: Yes (Other)
  Sender: FDA-Public Use
  Company Number: JP-ABBVIE-17P-087-1852299-00

PATIENT
  Age: 70 Year
  Sex: Male
  Weight: 63.9 kg

DRUGS (10)
  1. GASTROM [Concomitant]
     Active Substance: ECABET
     Indication: GASTRITIS
     Route: 048
  2. CALBLOCK [Concomitant]
     Active Substance: AZELNIDIPINE
     Indication: HYPERTENSION
     Route: 048
  3. STIBRON [Concomitant]
     Indication: DERMATITIS
     Route: 062
  4. LEUPLIN SR [Suspect]
     Active Substance: LEUPROLIDE ACETATE
     Indication: PROSTATE CANCER
     Dosage: 11.25 MG, Q3MONTHS
     Route: 050
     Dates: start: 20150410, end: 20150410
  5. ARTIST [Concomitant]
     Active Substance: CARVEDILOL
     Indication: HYPERTENSION
     Route: 048
  6. PETROLATUM SALICYLATE [Concomitant]
     Indication: DERMATITIS
     Route: 062
  7. CASODEX [Suspect]
     Active Substance: BICALUTAMIDE
     Indication: PROSTATE CANCER
     Dosage: UNK
     Route: 048
     Dates: start: 20150225
  8. LEUPLIN [Suspect]
     Active Substance: LEUPROLIDE ACETATE
     Indication: PROSTATE CANCER
     Dosage: 3.75 MG, Q4WEEKS
     Route: 058
     Dates: start: 20150311, end: 20150311
  9. OMEPRAL [Concomitant]
     Active Substance: OMEPRAZOLE
     Indication: GASTROOESOPHAGEAL REFLUX DISEASE
     Route: 048
  10. OLOPATADINE HYDROCHLORIDE. [Concomitant]
     Active Substance: OLOPATADINE HYDROCHLORIDE
     Indication: DERMATITIS
     Route: 048

REACTIONS (3)
  - Interstitial lung disease [Recovered/Resolved]
  - Orchidectomy [Unknown]
  - Radiotherapy [Unknown]

NARRATIVE: CASE EVENT DATE: 20160212
